FAERS Safety Report 15283753 (Version 2)
Quarter: 2020Q4

REPORT INFORMATION
  Report Type: Spontaneous
  Country: IT (occurrence: IT)
  Receive Date: 20180816
  Receipt Date: 20201230
  Transmission Date: 20210113
  Serious: Yes (Death, Other)
  Sender: FDA-Public Use
  Company Number: IT-CLINIGEN GROUP PLC/ CLINIGEN HEALTHCARE LTD-IT-CLGN-18-00311

PATIENT
  Age: 9 Year
  Sex: Male

DRUGS (2)
  1. FOSCARNET SODIUM. [Suspect]
     Active Substance: FOSCARNET SODIUM
     Indication: PNEUMONIA VIRAL
  2. FOSCARNET SODIUM. [Suspect]
     Active Substance: FOSCARNET SODIUM
     Indication: HUMAN HERPESVIRUS 6 INFECTION

REACTIONS (5)
  - Fungal infection [Fatal]
  - Off label use [Unknown]
  - Renal failure [Unknown]
  - Urethritis [Unknown]
  - Renal tubular disorder [Unknown]
